FAERS Safety Report 6898618-X (Version None)
Quarter: 2010Q3

REPORT INFORMATION
  Report Type: 
  Country: None (occurrence: None)
  Receive Date: 20100802
  Receipt Date: 20071106
  Transmission Date: 20110219
  Serious: Yes (Other)
  Sender: FDA-Public Use
  Company Number: US-PFIZER INC-2007079488

PATIENT
  Sex: Female
  Weight: 90 kg

DRUGS (7)
  1. LYRICA [Suspect]
     Indication: FIBROMYALGIA
     Dates: start: 20070917
  2. ACETAMINOPHEN AND HYDROCODONE BITARTRATE [Concomitant]
  3. TRAMADOL HYDROCHLORIDE [Concomitant]
  4. CYCLOBENZAPRINE [Concomitant]
  5. CLARINEX-D [Concomitant]
  6. IMITREX [Concomitant]
     Route: 048
  7. WELLBUTRIN [Concomitant]

REACTIONS (3)
  - COGNITIVE DISORDER [None]
  - DIZZINESS [None]
  - MIGRAINE [None]
